FAERS Safety Report 14182062 (Version 1)
Quarter: 2017Q4

REPORT INFORMATION
  Report Type: Spontaneous
  Country: US (occurrence: US)
  Receive Date: 20171113
  Receipt Date: 20171113
  Transmission Date: 20180321
  Serious: Yes (Hospitalization)
  Sender: FDA-Public Use
  Company Number: US-INDOCO-000026

PATIENT
  Age: 71 Year
  Sex: Female

DRUGS (1)
  1. ALLOPURINOL. [Suspect]
     Active Substance: ALLOPURINOL
     Indication: GOUT
     Dosage: TOOK ONE DOSE OF 300 MG,TOOK ONE DOSE OF 300 MG LATER.

REACTIONS (3)
  - Hypersensitivity [Unknown]
  - Cholecystitis [Unknown]
  - Drug reaction with eosinophilia and systemic symptoms [Recovering/Resolving]
